FAERS Safety Report 6302326-3 (Version None)
Quarter: 2009Q3

REPORT INFORMATION
  Report Type: 
  Country: None (occurrence: None)
  Receive Date: 20090810
  Receipt Date: 20090805
  Transmission Date: 20100115
  Serious: Yes (Other)
  Sender: FDA-Public Use
  Company Number: US-ASTRAZENECA-2009UW21810

PATIENT
  Sex: Female
  Weight: 61.2 kg

DRUGS (4)
  1. ATACAND [Suspect]
     Indication: HYPERTENSION
     Route: 048
     Dates: start: 20081201
  2. ENBREL [Concomitant]
  3. NAPROXEN [Concomitant]
  4. PREDNISONE [Concomitant]

REACTIONS (4)
  - APHASIA [None]
  - CONFUSIONAL STATE [None]
  - HYPERTENSION [None]
  - MEDICATION ERROR [None]
